FAERS Safety Report 14825369 (Version 1)
Quarter: 2018Q2

REPORT INFORMATION
  Report Type: Spontaneous
  Country: US (occurrence: US)
  Receive Date: 20180430
  Receipt Date: 20180430
  Transmission Date: 20180711
  Serious: Yes (Other)
  Sender: FDA-Public Use
  Company Number: US-PACIRA PHARMACEUTICALS, INC.-2018EXPUS00584

PATIENT
  Sex: Female

DRUGS (2)
  1. EXPAREL [Suspect]
     Active Substance: BUPIVACAINE
     Indication: POSTOPERATIVE ANALGESIA
     Dosage: 266 MG, SINGLE
  2. BUPIVACAINE. [Suspect]
     Active Substance: BUPIVACAINE
     Indication: POSTOPERATIVE ANALGESIA
     Dosage: 200 MG, SINGLE

REACTIONS (4)
  - Hepatic failure [Unknown]
  - Nodal rhythm [Recovered/Resolved]
  - Labelled drug-drug interaction medication error [Unknown]
  - Blood pressure decreased [Recovered/Resolved]
